FAERS Safety Report 10182060 (Version 1)
Quarter: 2014Q2

REPORT INFORMATION
  Report Type: Spontaneous
  Country: US (occurrence: US)
  Receive Date: 20140519
  Receipt Date: 20140519
  Transmission Date: 20141212
  Serious: Yes (Hospitalization)
  Sender: FDA-Public Use
  Company Number: US-BRISTOL-MYERS SQUIBB COMPANY-20723987

PATIENT
  Age: 82 Year
  Sex: Female
  Weight: 80.72 kg

DRUGS (1)
  1. BYETTA [Suspect]
     Dates: start: 2005

REACTIONS (3)
  - Knee arthroplasty [Unknown]
  - Decreased appetite [Unknown]
  - Drug dose omission [Unknown]
